FAERS Safety Report 4975101-X (Version None)
Quarter: 2006Q2

REPORT INFORMATION
  Report Type: 
  Country: None (occurrence: None)
  Receive Date: 20060418
  Receipt Date: 20060407
  Transmission Date: 20061013
  Serious: Yes (Other)
  Sender: FDA-Public Use
  Company Number: FI-AMGEN-UK175577

PATIENT
  Sex: Male

DRUGS (3)
  1. ARANESP [Suspect]
     Indication: ANAEMIA OF MALIGNANT DISEASE
     Route: 058
     Dates: start: 20051201, end: 20060301
  2. MELPHALAN [Concomitant]
     Route: 065
     Dates: start: 20050601, end: 20051201
  3. PREDNISONE [Concomitant]
     Route: 065
     Dates: start: 20050601, end: 20051201

REACTIONS (1)
  - APLASIA PURE RED CELL [None]
